FAERS Safety Report 5369752-0 (Version None)
Quarter: 2007Q2

REPORT INFORMATION
  Report Type: 
  Country: None (occurrence: None)
  Receive Date: 20070625
  Receipt Date: 20070613
  Transmission Date: 20071010
  Serious: Yes (Death, Hospitalization)
  Sender: FDA-Public Use
  Company Number: BR-PFIZER INC-2007050154

PATIENT
  Sex: Male

DRUGS (7)
  1. SUTENT [Suspect]
     Indication: RENAL CELL CARCINOMA STAGE UNSPECIFIED
     Route: 048
     Dates: start: 20061201, end: 20070101
  2. ALENDRONIC ACID [Concomitant]
  3. METFORMIN HCL [Concomitant]
  4. DIMORF [Concomitant]
  5. RITALIN [Concomitant]
  6. ALL OTHER THERAPEUTIC PRODUCTS [Concomitant]
  7. PREDNISONE TAB [Concomitant]

REACTIONS (4)
  - DISEASE PROGRESSION [None]
  - GALLBLADDER NECROSIS [None]
  - RENAL CELL CARCINOMA STAGE UNSPECIFIED [None]
  - THROMBOCYTOPENIA [None]
